FAERS Safety Report 7171025-0 (Version None)
Quarter: 2010Q4

REPORT INFORMATION
  Report Type: 
  Country: None (occurrence: None)
  Receive Date: 20101217
  Receipt Date: 20101215
  Transmission Date: 20110411
  Serious: Yes (Other)
  Sender: FDA-Public Use
  Company Number: DE-SANOFI-AVENTIS-2010SA075532

PATIENT
  Sex: Male

DRUGS (1)
  1. ARAVA [Suspect]
     Route: 048

REACTIONS (2)
  - BLOOD PRESSURE ABNORMAL [None]
  - TRANSIENT ISCHAEMIC ATTACK [None]
